FAERS Safety Report 10888367 (Version 1)
Quarter: 2015Q1

REPORT INFORMATION
  Report Type: Spontaneous
  Country: US (occurrence: US)
  Receive Date: 20150305
  Receipt Date: 20150305
  Transmission Date: 20150721
  Serious: Yes (Hospitalization, Other)
  Sender: FDA-Public Use
  Company Number: US-ABBVIE-15K-163-1353590-00

PATIENT
  Sex: Male

DRUGS (1)
  1. HUMIRA [Suspect]
     Active Substance: ADALIMUMAB
     Indication: ARTHRITIS
     Route: 065

REACTIONS (4)
  - Rash vesicular [Unknown]
  - Musculoskeletal pain [Unknown]
  - Cerebrovascular accident [Unknown]
  - Joint range of motion decreased [Unknown]
